FAERS Safety Report 16590482 (Version 1)
Quarter: 2019Q3

REPORT INFORMATION
  Report Type: Spontaneous
  Country: US (occurrence: US)
  Receive Date: 20190717
  Receipt Date: 20190717
  Transmission Date: 20191004
  Serious: Yes (Hospitalization)
  Sender: FDA-Public Use
  Company Number: None

PATIENT
  Age: 61 Year
  Sex: Female

DRUGS (7)
  1. DIAZEPAM. [Concomitant]
     Active Substance: DIAZEPAM
  2. METHYLPRED [Concomitant]
     Active Substance: METHYLPREDNISOLONE
  3. DICLOFENAC [Concomitant]
     Active Substance: DICLOFENAC
  4. CLARITHROMYC [Concomitant]
  5. BUPROPION. [Concomitant]
     Active Substance: BUPROPION
  6. METOPROL SUC [Concomitant]
  7. HUMIRA [Suspect]
     Active Substance: ADALIMUMAB
     Indication: PRODUCT USED FOR UNKNOWN INDICATION
     Dosage: ??          OTHER FREQUENCY:EVERY 2 WEEKS;?
     Route: 058
     Dates: start: 20190523

REACTIONS (2)
  - Pneumonia [None]
  - Headache [None]

NARRATIVE: CASE EVENT DATE: 20190710
